FAERS Safety Report 9863460 (Version 3)
Quarter: 2014Q4

REPORT INFORMATION
  Report Type: Spontaneous
  Country: US (occurrence: US)
  Receive Date: 20140203
  Receipt Date: 20141027
  Transmission Date: 20150529
  Serious: Yes (Hospitalization, Other)
  Sender: FDA-Public Use
  Company Number: US-009507513-1402USA000666

PATIENT
  Sex: Female

DRUGS (1)
  1. NUVARING [Suspect]
     Active Substance: ETHINYL ESTRADIOL\ETONOGESTREL
     Indication: CONTRACEPTION
     Dosage: UNK
     Route: 067
     Dates: end: 20060221

REACTIONS (11)
  - Pulmonary infarction [Unknown]
  - Calculus ureteric [Unknown]
  - Urinary tract infection [Unknown]
  - Migraine [Unknown]
  - Pulmonary embolism [Unknown]
  - Ureteric calculus removal [Unknown]
  - Ureteral stent insertion [Unknown]
  - Renal cyst [Unknown]
  - Anxiety [Unknown]
  - Gastritis [Unknown]
  - Abdominal pain upper [Recovering/Resolving]

NARRATIVE: CASE EVENT DATE: 2006
